FAERS Safety Report 6251608-2 (Version None)
Quarter: 2009Q2

REPORT INFORMATION
  Report Type: 
  Country: None (occurrence: None)
  Receive Date: 20090630
  Receipt Date: 20090626
  Transmission Date: 20091009
  Serious: Yes (Other)
  Sender: FDA-Public Use
  Company Number: GB-RB-017421-09

PATIENT
  Age: 40 Year
  Sex: Male

DRUGS (1)
  1. SUBUTEX [Suspect]
     Indication: DRUG WITHDRAWAL SYNDROME
     Dosage: 12 MG, FREQUENCY AND FORM UNKNOWN
     Route: 060

REACTIONS (1)
  - BONE NEOPLASM MALIGNANT [None]
